FAERS Safety Report 7460305-7 (Version None)
Quarter: 2011Q2

REPORT INFORMATION
  Report Type: 
  Country: None (occurrence: None)
  Receive Date: 20110505
  Receipt Date: 20110429
  Transmission Date: 20111010
  Serious: Yes (Death, Hospitalization)
  Sender: FDA-Public Use
  Company Number: A0777215A

PATIENT
  Age: 81 Year
  Sex: Female

DRUGS (7)
  1. AVAPRO [Concomitant]
  2. AVANDIA [Suspect]
     Dosage: 8MG PER DAY
     Route: 048
     Dates: start: 20040430, end: 20070602
  3. HYDROCHLOROTHIAZIDE [Concomitant]
  4. ESTROPIPATE [Concomitant]
  5. GLYBURIDE [Concomitant]
  6. LIPITOR [Concomitant]
  7. METFORMIN [Concomitant]

REACTIONS (6)
  - DEATH [None]
  - MYOCARDIAL INFARCTION [None]
  - ATRIAL FIBRILLATION [None]
  - ATRIOVENTRICULAR BLOCK COMPLETE [None]
  - DEMENTIA [None]
  - OEDEMA [None]
